FAERS Safety Report 18000960 (Version 5)
Quarter: 2021Q4

REPORT INFORMATION
  Report Type: Spontaneous
  Country: ES (occurrence: ES)
  Receive Date: 20200709
  Receipt Date: 20211005
  Transmission Date: 20220303
  Serious: Yes (Death, Hospitalization, Other)
  Sender: FDA-Public Use
  Company Number: ES-ASTELLAS-2020US007760

PATIENT
  Age: 53 Year
  Sex: Female

DRUGS (11)
  1. AZACITIDINE [Suspect]
     Active Substance: AZACITIDINE
     Indication: Acute myeloid leukaemia refractory
     Dosage: CYCLE
     Route: 065
  2. AZACITIDINE [Suspect]
     Active Substance: AZACITIDINE
     Dosage: 75 MG/M2, CYCLIC (1-7)
     Route: 065
     Dates: start: 20200120
  3. AZACITIDINE [Suspect]
     Active Substance: AZACITIDINE
     Dosage: CYCLIC (2ND CYCLE)
     Route: 065
     Dates: start: 20200218
  4. AZACITIDINE [Suspect]
     Active Substance: AZACITIDINE
     Dosage: CYCLIC (3RD CYCLE)
     Route: 065
     Dates: start: 20200326
  5. AZACITIDINE [Suspect]
     Active Substance: AZACITIDINE
     Dosage: CYCLIC (4TH CYCLE)
     Route: 065
     Dates: start: 20200525
  6. GILTERITINIB [Suspect]
     Active Substance: GILTERITINIB
     Indication: Acute myeloid leukaemia refractory
     Dosage: CYCLE
  7. GILTERITINIB [Suspect]
     Active Substance: GILTERITINIB
     Dosage: FREQ. (RESTARTED)
     Route: 065
     Dates: start: 20200522, end: 20200611
  8. GILTERITINIB [Suspect]
     Active Substance: GILTERITINIB
     Dosage: 140 MILLIGRAM, QD
     Route: 065
     Dates: start: 20200131, end: 20200511
  9. TACROLIMUS [Suspect]
     Active Substance: TACROLIMUS
     Indication: Immunosuppression
     Dosage: UNKNOWN FREQ.
     Route: 065
  10. TACROLIMUS [Suspect]
     Active Substance: TACROLIMUS
     Dosage: VARIABLE DOSE ENDED WITH 0.5 MG, DAILY (IN 24 HOURS)
     Route: 048
     Dates: end: 20190402
  11. TACROLIMUS [Suspect]
     Active Substance: TACROLIMUS
     Dosage: 4 MILLIGRAM (4 MG DAILY (IN 24 HOURS) )
     Route: 048
     Dates: start: 20190217

REACTIONS (31)
  - Multiple organ dysfunction syndrome [Fatal]
  - Pancytopenia [Unknown]
  - Candida infection [Not Recovered/Not Resolved]
  - Leukaemic infiltration extramedullary [Unknown]
  - Portal vein thrombosis [Recovered/Resolved]
  - Hepatic mass [Unknown]
  - Abdominal pain [Not Recovered/Not Resolved]
  - Aplasia [Not Recovered/Not Resolved]
  - Bronchopulmonary aspergillosis [Unknown]
  - Myeloid leukaemia [Not Recovered/Not Resolved]
  - Shock haemorrhagic [Recovered/Resolved]
  - Pyrexia [Not Recovered/Not Resolved]
  - Fungal skin infection [Unknown]
  - Disseminated aspergillosis [Unknown]
  - Cholangiocarcinoma [Unknown]
  - Noninfective sialoadenitis [Recovered/Resolved]
  - Graft versus host disease in liver [Not Recovered/Not Resolved]
  - Biliary tract infection fungal [Not Recovered/Not Resolved]
  - Stenotrophomonas infection [Recovered/Resolved]
  - Hepatic function abnormal [Not Recovered/Not Resolved]
  - Dilatation intrahepatic duct acquired [Not Recovered/Not Resolved]
  - General physical health deterioration [Not Recovered/Not Resolved]
  - Liver abscess [Unknown]
  - Febrile neutropenia [Recovered/Resolved]
  - Central nervous system fungal infection [Unknown]
  - Gastrointestinal haemorrhage [Unknown]
  - Haemorrhage [Not Recovered/Not Resolved]
  - Infection [Unknown]
  - Escherichia test positive [Not Recovered/Not Resolved]
  - Product use issue [Unknown]
  - Staphylococcus test positive [Not Recovered/Not Resolved]

NARRATIVE: CASE EVENT DATE: 20190220
